FAERS Safety Report 6284855-4 (Version None)
Quarter: 2009Q3

REPORT INFORMATION
  Report Type: 
  Country: None (occurrence: None)
  Receive Date: 20090727
  Receipt Date: 20090721
  Transmission Date: 20100115
  Serious: Yes (Hospitalization)
  Sender: FDA-Public Use
  Company Number: A0787464A

PATIENT
  Age: 48 Year
  Sex: Male

DRUGS (1)
  1. AVANDIA [Suspect]
     Dosage: 4MG TWICE PER DAY
     Route: 048
     Dates: start: 19990101, end: 20070101

REACTIONS (4)
  - DEEP VEIN THROMBOSIS [None]
  - INFARCTION [None]
  - PULMONARY EMBOLISM [None]
  - PULMONARY THROMBOSIS [None]
